FAERS Safety Report 8022606-3 (Version None)
Quarter: 2012Q1

REPORT INFORMATION
  Report Type: 
  Country: None (occurrence: None)
  Receive Date: 20120104
  Receipt Date: 20111226
  Transmission Date: 20120608
  Serious: Yes (Hospitalization)
  Sender: FDA-Public Use
  Company Number: JP-GLAXOSMITHKLINE-B0760064A

PATIENT
  Sex: Female
  Weight: 48 kg

DRUGS (4)
  1. AMOXICILLIN [Concomitant]
     Dosage: 750MG PER DAY
     Route: 048
     Dates: start: 20110706, end: 20110710
  2. CEFAZOLIN [Concomitant]
     Route: 042
     Dates: start: 20110705, end: 20110706
  3. LOXONIN [Concomitant]
     Indication: ANALGESIC THERAPY
     Dosage: 180MG PER DAY
     Route: 048
     Dates: start: 20110706, end: 20110710
  4. ARIXTRA [Suspect]
     Indication: THROMBOSIS PROPHYLAXIS
     Dosage: 2.5MG PER DAY
     Route: 058
     Dates: start: 20110707, end: 20110713

REACTIONS (6)
  - ANAEMIA [None]
  - PLATELET COUNT INCREASED [None]
  - ABSCESS [None]
  - PYREXIA [None]
  - MUSCLE HAEMORRHAGE [None]
  - WOUND DECOMPOSITION [None]
